FAERS Safety Report 12217091 (Version 1)
Quarter: 2016Q1

REPORT INFORMATION
  Report Type: Spontaneous
  Country: BR (occurrence: BR)
  Receive Date: 20160329
  Receipt Date: 20160329
  Transmission Date: 20160526
  Serious: Yes (Congenital Anomaly)
  Sender: FDA-Public Use
  Company Number: BR-ACTAVIS-2016-06571

PATIENT

DRUGS (1)
  1. DICLOFENAC SODIUM (UNKNOWN) [Suspect]
     Active Substance: DICLOFENAC SODIUM
     Indication: TOOTHACHE
     Dosage: 100 MG, DAILY
     Route: 064

REACTIONS (4)
  - Dilatation ventricular [Recovered/Resolved]
  - Tricuspid valve incompetence [Recovered/Resolved]
  - Foetal exposure during pregnancy [Unknown]
  - Ductus arteriosus stenosis foetal [Recovered/Resolved]
